FAERS Safety Report 6113623-9 (Version None)
Quarter: 2009Q1

REPORT INFORMATION
  Report Type: 
  Country: None (occurrence: None)
  Receive Date: 20090312
  Receipt Date: 20090305
  Transmission Date: 20090719
  Serious: Yes (Other)
  Sender: FDA-Public Use
  Company Number: US-ABBOTT-09P-163-0560986-00

PATIENT
  Sex: Male
  Weight: 101.7 kg

DRUGS (2)
  1. HUMIRA [Suspect]
     Indication: RHEUMATOID ARTHRITIS
     Dates: start: 20081202, end: 20090101
  2. JANUVIA [Concomitant]
     Indication: DIABETES MELLITUS
     Dosage: 1 PILL A DAY

REACTIONS (1)
  - PULMONARY EMBOLISM [None]
